FAERS Safety Report 4433795-1 (Version None)
Quarter: 2004Q3

REPORT INFORMATION
  Report Type: 
  Country: None (occurrence: None)
  Receive Date: 20040824
  Receipt Date: 20040824
  Transmission Date: 20050211
  Serious: Yes (Disabling)
  Sender: FDA-Public Use
  Company Number: None

PATIENT
  Age: 53 Year
  Sex: Male
  Weight: 69.8539 kg

DRUGS (2)
  1. DEPO-MEDROL [Suspect]
     Indication: INJECTION
     Dosage: 80CC  1  INTRATHECAL
     Route: 037
  2. DEPO-MEDROL [Suspect]
     Indication: BACK PAIN
     Dosage: 80CC  1  INTRATHECAL
     Route: 037

REACTIONS (9)
  - ASTHENIA [None]
  - BACK PAIN [None]
  - MUSCLE ATROPHY [None]
  - MUSCLE RIGIDITY [None]
  - MUSCLE SPASMS [None]
  - MUSCLE TIGHTNESS [None]
  - NEUROPATHY [None]
  - PAIN [None]
  - WEIGHT DECREASED [None]
